FAERS Safety Report 6439955-2 (Version None)
Quarter: 2009Q4

REPORT INFORMATION
  Report Type: 
  Country: None (occurrence: None)
  Receive Date: 20091112
  Receipt Date: 20091112
  Transmission Date: 20100525
  Serious: Yes (Other)
  Sender: FDA-Public Use
  Company Number: None

PATIENT
  Age: 53 Year
  Sex: Female
  Weight: 57 kg

DRUGS (6)
  1. PRECEDEX [Suspect]
     Indication: SEDATIVE THERAPY
     Dosage: 2 MCG/KG/HR, INTRAVENOUS .2 MCG/KG/HR INTRAVENOUS
     Route: 042
     Dates: start: 20061208, end: 20061208
  2. PRECEDEX [Suspect]
     Indication: SEDATIVE THERAPY
     Dosage: 2 MCG/KG/HR, INTRAVENOUS .2 MCG/KG/HR INTRAVENOUS
     Route: 042
     Dates: start: 20061208, end: 20061208
  3. ANESTHETICS NOS [Concomitant]
  4. FAMOTIDINE [Concomitant]
  5. OXYGEN [Concomitant]
  6. BUPIVACAINE [Concomitant]

REACTIONS (3)
  - BRADYCARDIA [None]
  - OBSTRUCTIVE AIRWAYS DISORDER [None]
  - SEDATION [None]
